APPROVED DRUG PRODUCT: POSIMIR
Active Ingredient: BUPIVACAINE
Strength: 660MG/5ML (132MG/ML)
Dosage Form/Route: SOLUTION;INFILTRATION
Application: N204803 | Product #001
Applicant: INNOCOLL PHARMACEUTICALS LTD
Approved: Feb 1, 2021 | RLD: Yes | RS: No | Type: DISCN

PATENTS:
Patent 11771624 | Expires: Jan 12, 2041
Patent 11400019 | Expires: Jan 12, 2041